FAERS Safety Report 7045488-5 (Version None)
Quarter: 2010Q4

REPORT INFORMATION
  Report Type: 
  Country: None (occurrence: None)
  Receive Date: 20101014
  Receipt Date: 20100920
  Transmission Date: 20110411
  Serious: No
  Sender: FDA-Public Use
  Company Number: US-ALLERGAN-1012188US

PATIENT
  Age: 28 Year
  Sex: Female

DRUGS (3)
  1. LATISSE [Suspect]
     Indication: GROWTH OF EYELASHES
     Dosage: 1 GTT, BID
     Route: 061
     Dates: start: 20100901
  2. ARTIFICIAL EYELASHES [Concomitant]
  3. MASCARA [Concomitant]

REACTIONS (2)
  - INTENTIONAL OVERDOSE [None]
  - MADAROSIS [None]
